FAERS Safety Report 7962991 (Version 2)
Quarter: 2013Q2

REPORT INFORMATION
  Report Type: Spontaneous
  Country: US (occurrence: US)
  Receive Date: 20110526
  Receipt Date: 20130524
  Transmission Date: 20140414
  Serious: Yes (Life-Threatening, Hospitalization, Congenital Anomaly, Other)
  Sender: FDA-Public Use
  Company Number: US-PFIZER INC-2011105820

PATIENT
  Sex: Female
  Weight: 3 kg

DRUGS (14)
  1. EFFEXOR XR [Suspect]
     Dosage: 150 MG, 1X/DAY
     Route: 064
  2. EFFEXOR [Suspect]
     Dosage: UNK
     Route: 064
  3. VENLAFAXINE HCL [Suspect]
     Dosage: UNK
     Route: 064
  4. DECADRON [Concomitant]
     Dosage: UNK
     Route: 064
  5. DEMEROL [Concomitant]
     Dosage: UNK
     Route: 064
  6. PROMETHAZINE HYDROCHLORIDE [Concomitant]
     Dosage: UNK
     Route: 064
  7. LORTAB [Concomitant]
     Dosage: UNK
     Route: 064
  8. ZOFRAN [Concomitant]
     Dosage: AS NEEDED
     Route: 064
  9. TYLENOL [Concomitant]
     Dosage: AS NEEDED
     Route: 064
  10. PRENATAL VITAMINS [Concomitant]
     Dosage: UNK
     Route: 064
  11. ZITHROMAX [Concomitant]
     Dosage: UNK
     Route: 064
  12. LOPRESSOR [Concomitant]
     Dosage: 50 MG, 2X/DAY
     Route: 064
  13. AMPICILLIN SODIUM W/SULBACTAM SODIUM [Concomitant]
     Dosage: UNK
     Route: 064
  14. LIDOCAINE [Concomitant]
     Dosage: UNK
     Route: 064

REACTIONS (22)
  - Foetal exposure during pregnancy [Unknown]
  - Hypoplastic left heart syndrome [Unknown]
  - Atrial septal defect [Unknown]
  - Ventricular septal defect [Unknown]
  - Shone complex [Unknown]
  - Right atrial dilatation [Unknown]
  - Patent ductus arteriosus [Unknown]
  - Dilatation ventricular [Unknown]
  - Ventricular hypertrophy [Unknown]
  - Tricuspid valve incompetence [Unknown]
  - Rotavirus infection [Recovered/Resolved]
  - Failure to thrive [Recovering/Resolving]
  - Acute tonsillitis [Unknown]
  - Otitis media acute [Recovered/Resolved]
  - Upper respiratory tract infection [Unknown]
  - Gastrooesophageal reflux disease [Unknown]
  - Dysphagia [Unknown]
  - Gastroenteritis [Unknown]
  - Pyrexia [Unknown]
  - Rash [Unknown]
  - Cerumen impaction [Unknown]
  - Teething [Unknown]
